FAERS Safety Report 8191144-X (Version None)
Quarter: 2012Q1

REPORT INFORMATION
  Report Type: 
  Country: None (occurrence: None)
  Receive Date: 20120307
  Receipt Date: 20120305
  Transmission Date: 20120608
  Serious: Yes (Hospitalization)
  Sender: FDA-Public Use
  Company Number: FR-GLAXOSMITHKLINE-B0786429A

PATIENT
  Age: 52 Year
  Sex: Female

DRUGS (4)
  1. ALKERAN [Suspect]
     Indication: ACUTE MYELOID LEUKAEMIA
     Dosage: 238MG PER DAY
     Dates: start: 20110920, end: 20110920
  2. MITOXANTRONE [Suspect]
     Indication: ACUTE MYELOID LEUKAEMIA
     Route: 065
     Dates: start: 20110719, end: 20110720
  3. BUSULFAN [Suspect]
     Indication: ACUTE MYELOID LEUKAEMIA
     Route: 065
     Dates: start: 20110916, end: 20110919
  4. CYTARABINE [Suspect]
     Indication: ACUTE MYELOID LEUKAEMIA
     Route: 065
     Dates: start: 20110719, end: 20110723

REACTIONS (3)
  - ACUTE RESPIRATORY FAILURE [None]
  - FEBRILE BONE MARROW APLASIA [None]
  - SEPSIS [None]
